FAERS Safety Report 22518876 (Version 2)
Quarter: 2023Q2

REPORT INFORMATION
  Report Type: Spontaneous
  Country: ES (occurrence: ES)
  Receive Date: 20230605
  Receipt Date: 20230615
  Transmission Date: 20230722
  Serious: Yes (Hospitalization, Other)
  Sender: FDA-Public Use
  Company Number: ES-ABBVIE-4708024

PATIENT
  Age: 76 Year
  Sex: Male

DRUGS (9)
  1. QUETIAPINE FUMARATE [Suspect]
     Active Substance: QUETIAPINE FUMARATE
     Indication: Behaviour disorder
     Dosage: 75 MILLIGRAM, TWO TIMES A DAY
     Route: 048
     Dates: start: 202304, end: 202304
  2. QUETIAPINE FUMARATE [Suspect]
     Active Substance: QUETIAPINE FUMARATE
     Dosage: UNK UNK, ONCE A DAY
     Route: 048
     Dates: start: 202304, end: 202304
  3. QUETIAPINE FUMARATE [Suspect]
     Active Substance: QUETIAPINE FUMARATE
     Dosage: 50 MILLIGRAM
     Route: 048
     Dates: start: 202304, end: 202304
  4. QUETIAPINE FUMARATE [Suspect]
     Active Substance: QUETIAPINE FUMARATE
     Dosage: 100 MILLIGRAM
     Route: 048
     Dates: start: 202304
  5. CARBIDOPA\LEVODOPA [Suspect]
     Active Substance: CARBIDOPA\LEVODOPA
     Indication: Parkinson^s disease
     Dosage: UNK (PERCUTANEOUS J TUBE)
     Dates: start: 20220727, end: 202304
  6. CARBIDOPA\LEVODOPA [Suspect]
     Active Substance: CARBIDOPA\LEVODOPA
     Dosage: UNK (CONTINUOUS DOSE IS DECREASED WITH 0.1ML/H, PERCUTANEOUS J-TUBE )
     Dates: start: 202304, end: 202306
  7. CARBIDOPA\LEVODOPA [Suspect]
     Active Substance: CARBIDOPA\LEVODOPA
     Dosage: UNK (CONTINUOUS INFUSION PUMP DOSE MODIFIED
     Dates: start: 202306
  8. RIVOTRIL [Suspect]
     Active Substance: CLONAZEPAM
     Indication: Behaviour disorder
     Dosage: UNK UNK, ONCE A DAY
     Route: 048
     Dates: start: 202304
  9. APOMORPHINE HYDROCHLORIDE [Concomitant]
     Active Substance: APOMORPHINE HYDROCHLORIDE
     Indication: Product used for unknown indication
     Dosage: UNK
     Route: 065

REACTIONS (23)
  - Renal failure [Recovered/Resolved]
  - Hallucination [Not Recovered/Not Resolved]
  - Enteral nutrition [Unknown]
  - Behavioural therapy [Not Recovered/Not Resolved]
  - Urinary tract infection [Recovered/Resolved]
  - Restlessness [Unknown]
  - Agitation [Recovered/Resolved]
  - Dyskinesia [Recovering/Resolving]
  - Parkinsonism [Not Recovered/Not Resolved]
  - Dyspnoea [Recovered/Resolved]
  - Constipation [Unknown]
  - Condition aggravated [Unknown]
  - Device dislocation [Not Recovered/Not Resolved]
  - Hypophagia [Unknown]
  - Off label use [Unknown]
  - Unevaluable event [Unknown]
  - Hypophagia [Unknown]
  - Pyrexia [Unknown]
  - Infrequent bowel movements [Unknown]
  - Decubitus ulcer [Unknown]
  - Emotional distress [Unknown]
  - Incorrect route of product administration [Unknown]
  - Device physical property issue [Unknown]

NARRATIVE: CASE EVENT DATE: 20230301
